FAERS Safety Report 14496177 (Version 2)
Quarter: 2018Q1

REPORT INFORMATION
  Report Type: Report from Study
  Country: None (occurrence: BR)
  Receive Date: 20180207
  Receipt Date: 20180307
  Transmission Date: 20180509
  Serious: Yes (Other)
  Sender: FDA-Public Use
  Company Number: BR-ABBVIE-18K-020-2245622-00

PATIENT
  Age: 46 Year
  Sex: Female
  Weight: 74 kg

DRUGS (2)
  1. LEFLUNOMIDE. [Concomitant]
     Active Substance: LEFLUNOMIDE
     Indication: ARTHRITIS
  2. HUMIRA [Suspect]
     Active Substance: ADALIMUMAB
     Indication: RHEUMATOID ARTHRITIS
     Route: 058
     Dates: start: 20121201

REACTIONS (11)
  - Localised infection [Recovering/Resolving]
  - Eating disorder [Recovering/Resolving]
  - Limb injury [Recovering/Resolving]
  - Skin haemorrhage [Recovering/Resolving]
  - Pharyngeal mass [Recovering/Resolving]
  - Ear infection [Recovering/Resolving]
  - Haemoptysis [Unknown]
  - Stomatitis [Recovering/Resolving]
  - Pain [Recovering/Resolving]
  - Throat tightness [Recovering/Resolving]
  - Fatigue [Recovering/Resolving]

NARRATIVE: CASE EVENT DATE: 20180117
